FAERS Safety Report 5628346-X (Version None)
Quarter: 2008Q1

REPORT INFORMATION
  Report Type: 
  Country: None (occurrence: None)
  Receive Date: 20080215
  Receipt Date: 20080211
  Transmission Date: 20080703
  Serious: Yes (Hospitalization, Disabling)
  Sender: FDA-Public Use
  Company Number: US-SANOFI-SYNTHELABO-A03200702157

PATIENT
  Sex: Female
  Weight: 61.7 kg

DRUGS (29)
  1. AMBIEN [Suspect]
     Indication: SLEEP DISORDER
     Dosage: UNK
     Route: 048
     Dates: start: 20010101, end: 20070301
  2. ZELNORM [Concomitant]
     Indication: DRUG USE FOR UNKNOWN INDICATION
     Dosage: UNK
     Route: 048
  3. TRIAMTERENE [Concomitant]
     Indication: DRUG USE FOR UNKNOWN INDICATION
     Dosage: UNK
     Route: 048
  4. NEXIUM [Concomitant]
     Indication: GASTROOESOPHAGEAL REFLUX DISEASE
     Dosage: UNK
     Route: 065
  5. LEXAPRO [Concomitant]
     Indication: DRUG USE FOR UNKNOWN INDICATION
     Dosage: UNK
     Route: 048
  6. NORVASC [Concomitant]
     Indication: HYPERTENSION
     Dosage: UNK
     Route: 065
  7. ZOCOR [Concomitant]
     Indication: BLOOD CHOLESTEROL INCREASED
     Dosage: UNK
     Route: 065
  8. FUROSEMIDE [Concomitant]
     Indication: DRUG USE FOR UNKNOWN INDICATION
     Route: 065
  9. ZESTRIL [Concomitant]
     Indication: DRUG USE FOR UNKNOWN INDICATION
     Dosage: UNK
     Route: 065
  10. LORAZEPAM [Concomitant]
     Indication: DRUG USE FOR UNKNOWN INDICATION
     Route: 065
  11. ROXICET [Concomitant]
     Indication: DRUG USE FOR UNKNOWN INDICATION
     Dosage: 5 MG/325 MG
     Route: 065
  12. PRINIVIL [Concomitant]
     Indication: DRUG USE FOR UNKNOWN INDICATION
     Route: 065
  13. CEPHALEXIN [Concomitant]
     Indication: DRUG USE FOR UNKNOWN INDICATION
     Route: 065
  14. TRI-VENT [Concomitant]
     Indication: DRUG USE FOR UNKNOWN INDICATION
     Dosage: UNK
     Route: 065
  15. CEFPROZIL [Concomitant]
     Indication: DRUG USE FOR UNKNOWN INDICATION
     Dosage: UNK
     Route: 065
  16. OXYCODONE AND ACETAMINOPHEN [Concomitant]
     Indication: DRUG USE FOR UNKNOWN INDICATION
     Dosage: 5 MG/325 MG
     Route: 065
  17. DIAZEPAM [Concomitant]
     Indication: DRUG USE FOR UNKNOWN INDICATION
     Route: 065
  18. CHLORHEXIDINE GLUCONATE [Concomitant]
     Indication: DRUG USE FOR UNKNOWN INDICATION
     Route: 065
  19. DICLOFENAC SODIUM [Concomitant]
     Indication: DRUG USE FOR UNKNOWN INDICATION
     Route: 065
  20. ACETAMINOPHEN AND HYDROCODONE BITARTRATE [Concomitant]
     Indication: PAIN
     Dosage: 5 MG/500 MG
     Route: 065
  21. ACETAMINOPHEN AND HYDROCODONE BITARTRATE [Concomitant]
     Dosage: 7.5 MG/750 MG
     Route: 065
  22. PROMETHAZINE [Concomitant]
     Indication: DRUG USE FOR UNKNOWN INDICATION
     Route: 065
  23. AZITHROMYCIN [Concomitant]
     Indication: DRUG USE FOR UNKNOWN INDICATION
     Route: 065
  24. TUSSIONEX [Concomitant]
     Indication: DRUG USE FOR UNKNOWN INDICATION
     Dosage: UNK
     Route: 065
  25. HYDROXYZINE HCL [Concomitant]
     Indication: DRUG USE FOR UNKNOWN INDICATION
     Route: 065
  26. METHYLPREDNISOLONE [Concomitant]
     Indication: DRUG USE FOR UNKNOWN INDICATION
     Route: 065
  27. MULTI-VITAMIN [Concomitant]
     Indication: DRUG USE FOR UNKNOWN INDICATION
     Dosage: UNK
     Route: 065
  28. BENADRYL [Concomitant]
     Indication: ALLERGIC SINUSITIS
     Dosage: UNK
     Route: 065
  29. ASPIRIN [Concomitant]
     Indication: DRUG USE FOR UNKNOWN INDICATION
     Dosage: UNK
     Route: 048

REACTIONS (21)
  - AMNESIA [None]
  - ARTHRALGIA [None]
  - CONTUSION [None]
  - DIZZINESS [None]
  - EATING DISORDER [None]
  - FOOT DEFORMITY [None]
  - FRACTURE [None]
  - HEADACHE [None]
  - INCOHERENT [None]
  - INTENTIONAL DRUG MISUSE [None]
  - LIVER INJURY [None]
  - LOSS OF CONSCIOUSNESS [None]
  - MULTIPLE INJURIES [None]
  - MYALGIA [None]
  - PAIN [None]
  - ROAD TRAFFIC ACCIDENT [None]
  - SOMNAMBULISM [None]
  - TENDON RUPTURE [None]
  - UTERINE HAEMORRHAGE [None]
  - VERTIGO POSITIONAL [None]
  - WALKING DISABILITY [None]
